FAERS Safety Report 8616727-1 (Version None)
Quarter: 2012Q3

REPORT INFORMATION
  Report Type: 
  Country: None (occurrence: None)
  Receive Date: 20120823
  Receipt Date: 20120817
  Transmission Date: 20120928
  Serious: Yes (Other)
  Sender: FDA-Public Use
  Company Number: PHHY2012GB058342

PATIENT
  Age: 66 Year
  Sex: Female

DRUGS (2)
  1. ATORVASTATIN [Suspect]
     Dosage: 10 MG
     Dates: start: 20100101
  2. NITROFURANTOIN [Concomitant]
     Indication: BLADDER DISORDER

REACTIONS (4)
  - URINARY TRACT INFECTION [None]
  - SKIN IRRITATION [None]
  - ERYTHEMA [None]
  - SKIN BURNING SENSATION [None]
